FAERS Safety Report 5931721-7 (Version None)
Quarter: 2008Q4

REPORT INFORMATION
  Report Type: 
  Country: None (occurrence: None)
  Receive Date: 20081027
  Receipt Date: 20081021
  Transmission Date: 20090506
  Serious: Yes (Hospitalization)
  Sender: FDA-Public Use
  Company Number: US-BAYER-200813513BCC

PATIENT
  Age: 57 Year
  Sex: Male
  Weight: 91 kg

DRUGS (6)
  1. ASPIRIN [Suspect]
     Indication: ISCHAEMIC HEART DISEASE PROPHYLAXIS
     Dosage: TOTAL DAILY DOSE: 325 MG  UNIT DOSE: 325 MG
     Route: 048
     Dates: start: 20060401, end: 20060501
  2. PLAVIX [Concomitant]
     Dates: start: 20060301
  3. TOPROL-XL [Concomitant]
     Dates: start: 20060301
  4. NEXIUM [Concomitant]
     Dates: start: 20060601
  5. ASPIRIN [Concomitant]
     Dates: start: 20060301
  6. LOVENOX [Concomitant]
     Dates: start: 20060301

REACTIONS (2)
  - GASTROINTESTINAL HAEMORRHAGE [None]
  - HAEMOGLOBIN DECREASED [None]
